FAERS Safety Report 8858893 (Version 1)
Quarter: 2012Q4

REPORT INFORMATION
  Report Type: Spontaneous
  Country: US (occurrence: None)
  Receive Date: 20121019
  Receipt Date: 20121019
  Transmission Date: 20130627
  Serious: Yes (Hospitalization)
  Sender: FDA-Public Use
  Company Number: 2012-1024

PATIENT
  Age: 50 Year
  Sex: Female

DRUGS (3)
  1. KYPROLIS [Suspect]
     Indication: MULTIPLE MYELOMA
     Dosage: 12.2857 mg (43 mg,2 in 1 wk) , Intravenous
     Route: 042
     Dates: start: 20120913
  2. PROMETHAZINE (PROMETHAZINE) [Concomitant]
  3. DEXAMETHASONE (DEXAMETHASONE)(DEXAMETHASONE) [Concomitant]

REACTIONS (5)
  - Dehydration [None]
  - Dyspnoea [None]
  - Urinary tract infection [None]
  - Pancytopenia [None]
  - Diarrhoea [None]
